FAERS Safety Report 6345340-4 (Version None)
Quarter: 2009Q3

REPORT INFORMATION
  Report Type: 
  Country: None (occurrence: None)
  Receive Date: 20090821
  Receipt Date: 20090601
  Transmission Date: 20100115
  Serious: No
  Sender: FDA-Public Use
  Company Number: 8047311

PATIENT
  Age: 65 Year
  Sex: Male
  Weight: 88.4 kg

DRUGS (7)
  1. CIMZIA [Suspect]
     Indication: CROHN'S DISEASE
     Dosage: 400 MG SC
     Route: 058
     Dates: start: 20090422
  2. BALSALAZIDE [Concomitant]
  3. NEXIUM [Concomitant]
  4. DIPHEN/ATROP [Concomitant]
  5. XYZAL [Concomitant]
  6. FISH OIL [Concomitant]
  7. JOINT FORMULA [Concomitant]

REACTIONS (3)
  - DIARRHOEA [None]
  - HAEMATOCHEZIA [None]
  - INJECTION SITE ERYTHEMA [None]
